FAERS Safety Report 26051922 (Version 3)
Quarter: 2025Q4

REPORT INFORMATION
  Report Type: Report from Study
  Country: US (occurrence: US)
  Receive Date: 20251117
  Receipt Date: 20251216
  Transmission Date: 20260117
  Serious: Yes (Other)
  Sender: ABBVIE
  Company Number: US-ABBVIE-6546985

PATIENT
  Age: 68 Year
  Sex: Female
  Weight: 73.028 kg

DRUGS (4)
  1. VYALEV [Suspect]
     Active Substance: FOSCARBIDOPA\FOSLEVODOPA
     Indication: Parkinson^s disease
     Dosage: 24-HOUR INFUSION
     Route: 058
     Dates: start: 202508, end: 2025
  2. VYALEV [Suspect]
     Active Substance: FOSCARBIDOPA\FOSLEVODOPA
     Route: 058
     Dates: start: 2025
  3. ELIQUIS [Concomitant]
     Active Substance: APIXABAN
     Indication: Cardiac disorder
  4. MIDODRINE [Concomitant]
     Active Substance: MIDODRINE
     Indication: Hypotension

REACTIONS (12)
  - Infusion site irritation [Recovered/Resolved]
  - Infusion site abscess [Recovered/Resolved]
  - Infusion site reaction [Unknown]
  - Infusion site induration [Unknown]
  - Infusion site discharge [Unknown]
  - Infusion site mass [Unknown]
  - Infusion site pain [Recovering/Resolving]
  - Catheter site related reaction [Unknown]
  - Catheter site warmth [Unknown]
  - Catheter site hypersensitivity [Unknown]
  - Panic attack [Unknown]
  - Anxiety [Unknown]

NARRATIVE: CASE EVENT DATE: 20250101
